FAERS Safety Report 9628954 (Version 2)
Quarter: 2013Q4

REPORT INFORMATION
  Report Type: Spontaneous
  Country: US (occurrence: US)
  Receive Date: 20131017
  Receipt Date: 20131202
  Transmission Date: 20140711
  Serious: No
  Sender: FDA-Public Use
  Company Number: US-PFIZER INC-2013293868

PATIENT
  Age: 75 Year
  Sex: Male
  Weight: 86.17 kg

DRUGS (8)
  1. ADVIL [Suspect]
     Indication: BACK PAIN
     Dosage: 200 MG, TWO TIMES A DAY
     Dates: start: 1977
  2. ADVIL [Suspect]
     Indication: LIGAMENT SPRAIN
  3. TYLENOL [Suspect]
     Indication: PAIN
     Dosage: UNK
  4. METANX [Concomitant]
     Dosage: UNK
  5. AMARYL [Concomitant]
     Indication: DIABETES MELLITUS
     Dosage: UNK
  6. METFORMIN [Concomitant]
     Indication: DIABETES MELLITUS
     Dosage: UNK
  7. JANUVIA [Concomitant]
     Indication: DIABETES MELLITUS
     Dosage: UNK
  8. LANTUS [Concomitant]
     Indication: DIABETES MELLITUS
     Dosage: UNK

REACTIONS (2)
  - Drug effect delayed [Unknown]
  - Drug ineffective [Unknown]
